FAERS Safety Report 10488667 (Version 1)
Quarter: 2014Q4

REPORT INFORMATION
  Report Type: Spontaneous
  Country: FR (occurrence: FR)
  Receive Date: 20141002
  Receipt Date: 20141002
  Transmission Date: 20150528
  Serious: Yes (Other)
  Sender: FDA-Public Use
  Company Number: FR-ROCHE-1468718

PATIENT
  Age: 45 Year
  Sex: Female

DRUGS (2)
  1. HERCEPTIN [Suspect]
     Active Substance: TRASTUZUMAB
     Indication: BREAST CANCER
     Route: 042
     Dates: start: 20130715, end: 20140514
  2. TAXOTERE [Suspect]
     Active Substance: DOCETAXEL
     Indication: BREAST CANCER
     Route: 042
     Dates: start: 20130715, end: 20131028

REACTIONS (2)
  - Left ventricular failure [Recovered/Resolved]
  - Impaired healing [Recovering/Resolving]

NARRATIVE: CASE EVENT DATE: 20131003
